FAERS Safety Report 25202753 (Version 1)
Quarter: 2025Q2

REPORT INFORMATION
  Report Type: Spontaneous
  Country: US (occurrence: US)
  Receive Date: 20250416
  Receipt Date: 20250416
  Transmission Date: 20250717
  Serious: No
  Sender: GRIFOLS
  Company Number: US-IGSA-BIG0034381

PATIENT
  Age: 28 Year
  Sex: Female

DRUGS (1)
  1. XEMBIFY [Suspect]
     Active Substance: HUMAN IMMUNOGLOBULIN G
     Indication: Immunodeficiency common variable
     Dosage: 6 GRAM, Q.WK.
     Route: 058
     Dates: start: 20250404

REACTIONS (1)
  - Infusion site urticaria [Unknown]

NARRATIVE: CASE EVENT DATE: 20250404
